FAERS Safety Report 5824391-X (Version None)
Quarter: 2008Q3

REPORT INFORMATION
  Report Type: 
  Country: None (occurrence: None)
  Receive Date: 20080728
  Receipt Date: 20080721
  Transmission Date: 20090109
  Serious: Yes (Other)
  Sender: FDA-Public Use
  Company Number: A0728821A

PATIENT
  Age: 82 Year
  Sex: Female

DRUGS (12)
  1. LAMICTAL [Suspect]
     Indication: DEMENTIA
     Dosage: 300MG PER DAY
     Route: 048
     Dates: end: 20080515
  2. METHOTREXATE [Concomitant]
     Indication: DRUG USE FOR UNKNOWN INDICATION
  3. ASPIRIN [Concomitant]
     Indication: DRUG USE FOR UNKNOWN INDICATION
  4. CALCITRIOL [Concomitant]
     Indication: DRUG USE FOR UNKNOWN INDICATION
  5. MULTIVITAMIN WITH MINERALS [Concomitant]
     Indication: DRUG USE FOR UNKNOWN INDICATION
  6. FOLIC ACID [Concomitant]
     Indication: DRUG USE FOR UNKNOWN INDICATION
  7. LASIX [Concomitant]
     Indication: DRUG USE FOR UNKNOWN INDICATION
  8. LOPRESSOR [Concomitant]
     Indication: DRUG USE FOR UNKNOWN INDICATION
  9. SORBITOL [Concomitant]
     Indication: DRUG USE FOR UNKNOWN INDICATION
     Route: 048
  10. TYLENOL [Concomitant]
     Indication: DRUG USE FOR UNKNOWN INDICATION
  11. RISPERDAL [Concomitant]
     Indication: DRUG USE FOR UNKNOWN INDICATION
  12. COUMADIN [Concomitant]
     Indication: DRUG USE FOR UNKNOWN INDICATION

REACTIONS (5)
  - ERYTHEMA [None]
  - LETHARGY [None]
  - RASH [None]
  - STEVENS-JOHNSON SYNDROME [None]
  - SWELLING FACE [None]
